FAERS Safety Report 7240897-3 (Version None)
Quarter: 2011Q1

REPORT INFORMATION
  Report Type: 
  Country: None (occurrence: None)
  Receive Date: 20110124
  Receipt Date: 20110111
  Transmission Date: 20110831
  Serious: Yes (Hospitalization, Other)
  Sender: FDA-Public Use
  Company Number: PHHY2010DE87721

PATIENT
  Sex: Male
  Weight: 102 kg

DRUGS (10)
  1. DIURETICS [Concomitant]
  2. HYDROCHLOROTHIAZIDE [Concomitant]
  3. BISOPROLOL [Concomitant]
  4. CALCIUM [Concomitant]
     Dosage: UNK
     Dates: end: 20081008
  5. ALISKIREN [Suspect]
     Indication: HYPERTENSION
     Dosage: 150 MG, UNK
  6. BETA BLOCKING AGENTS [Concomitant]
  7. ANGIOTENSIN CONVERTING ENZYME BLOCKERS [Concomitant]
  8. TELMISARTAN [Concomitant]
  9. AMLODIPINE [Concomitant]
     Dosage: UNK
     Dates: start: 20081008
  10. ALISKIREN [Suspect]
     Dosage: 300 MG, UNK
     Dates: start: 20081006

REACTIONS (4)
  - AORTIC VALVE INCOMPETENCE [None]
  - BLOOD PRESSURE SYSTOLIC INCREASED [None]
  - BLOOD PRESSURE DIASTOLIC DECREASED [None]
  - CORONARY ARTERY DISEASE [None]
